FAERS Safety Report 12907843 (Version 1)
Quarter: 2016Q4

REPORT INFORMATION
  Report Type: Spontaneous
  Country: US (occurrence: US)
  Receive Date: 20161103
  Receipt Date: 20161103
  Transmission Date: 20170207
  Serious: No
  Sender: FDA-Public Use
  Company Number: US-PFIZER INC-2016511671

PATIENT
  Age: 84 Year
  Sex: Female
  Weight: 85 kg

DRUGS (2)
  1. BUMEX [Concomitant]
     Active Substance: BUMETANIDE
     Indication: CARDIAC FAILURE CONGESTIVE
  2. REVATIO [Suspect]
     Active Substance: SILDENAFIL CITRATE
     Indication: PULMONARY HYPERTENSION
     Dosage: UNK UNK, 3X/DAY

REACTIONS (4)
  - Dyspnoea [Unknown]
  - Malaise [Unknown]
  - Cough [Not Recovered/Not Resolved]
  - Aphonia [Unknown]
